FAERS Safety Report 16780692 (Version 1)
Quarter: 2019Q4

REPORT INFORMATION
  Report Type: Spontaneous
  Country: US (occurrence: US)
  Receive Date: 20190906
  Receipt Date: 20190906
  Transmission Date: 20200122
  Serious: Yes (Hospitalization)
  Sender: FDA-Public Use
  Company Number: None

PATIENT
  Age: 32 Year
  Sex: Female
  Weight: 64.8 kg

DRUGS (6)
  1. IBUPROFEN. [Concomitant]
     Active Substance: IBUPROFEN
  2. DAILY MULTI VITAMIN [Concomitant]
  3. LEVOFLOXACIN 500MG [Suspect]
     Active Substance: LEVOFLOXACIN
     Indication: URINARY TRACT INFECTION
     Dosage: ?          QUANTITY:1 TABLET(S);?
     Route: 048
     Dates: start: 20190827, end: 20190901
  4. VITAFUSION [Concomitant]
  5. PHENTERMINE. [Concomitant]
     Active Substance: PHENTERMINE
  6. VULTIVITES [Concomitant]

REACTIONS (6)
  - Arthralgia [None]
  - Gait disturbance [None]
  - Joint swelling [None]
  - Musculoskeletal stiffness [None]
  - Bone pain [None]
  - Drug ineffective [None]

NARRATIVE: CASE EVENT DATE: 20190902
